FAERS Safety Report 20169566 (Version 1)
Quarter: 2021Q4

REPORT INFORMATION
  Report Type: Spontaneous
  Country: US (occurrence: None)
  Receive Date: 20211209
  Receipt Date: 20211209
  Transmission Date: 20220303
  Serious: Yes (Hospitalization)
  Sender: FDA-Public Use
  Company Number: None

PATIENT
  Age: 34 Year
  Sex: Female
  Weight: 70.31 kg

DRUGS (1)
  1. REGEN-COV [Suspect]
     Active Substance: CASIRIVIMAB\IMDEVIMAB
     Indication: COVID-19
     Dosage: FREQUENCY : ONCE;?
     Route: 058

REACTIONS (6)
  - Hypotension [None]
  - Heart rate decreased [None]
  - Dizziness [None]
  - Dizziness [None]
  - Dyspnoea [None]
  - Post procedural complication [None]

NARRATIVE: CASE EVENT DATE: 20211209
